FAERS Safety Report 20505766 (Version 1)
Quarter: 2022Q1

REPORT INFORMATION
  Report Type: Spontaneous
  Country: US (occurrence: None)
  Receive Date: 20220222
  Receipt Date: 20220222
  Transmission Date: 20220424
  Serious: Yes (Death)
  Sender: FDA-Public Use
  Company Number: None

PATIENT
  Sex: Female

DRUGS (1)
  1. BOTOX [Suspect]
     Active Substance: ONABOTULINUMTOXINA
     Indication: Migraine without aura
     Dosage: INJECT UP TO 200 UNITS IN THE MUSCLE TO HEAD AND NECK EVERY 12 WEEKS AT MD OFFICE?
     Route: 030
     Dates: start: 20210519

REACTIONS (1)
  - Death [None]
